FAERS Safety Report 8240313 (Version 9)
Quarter: 2013Q4

REPORT INFORMATION
  Report Type: Report from Study
  Country: US (occurrence: US)
  Receive Date: 20111110
  Receipt Date: 20131016
  Transmission Date: 20140711
  Serious: Yes (Death, Life-Threatening, Hospitalization, Other)
  Sender: FDA-Public Use
  Company Number: US-UCBSA-045003

PATIENT
  Age: 70 Year
  Sex: Female
  Weight: 92.7 kg

DRUGS (17)
  1. CERTOLIZUMAB PEGOL [Suspect]
     Indication: PSORIATIC ARTHROPATHY
     Route: 058
     Dates: start: 20100701
  2. FOLIC ACID [Concomitant]
     Indication: MEDICAL DIET
     Route: 048
     Dates: start: 2009
  3. METHOTREXATE [Concomitant]
     Indication: PSORIATIC ARTHROPATHY
     Route: 048
     Dates: start: 2009
  4. ATENOLOL [Concomitant]
     Indication: HYPERTENSION
     Route: 048
     Dates: start: 1985
  5. ZOCOR [Concomitant]
     Indication: BLOOD CHOLESTEROL INCREASED
     Route: 048
     Dates: start: 2002
  6. AMARYL [Concomitant]
     Indication: TYPE 2 DIABETES MELLITUS
     Route: 048
     Dates: start: 2007
  7. PRILOSEC [Concomitant]
     Indication: GASTROOESOPHAGEAL REFLUX DISEASE
     Dosage: 20MG DAILY
     Route: 048
  8. PRILOSEC [Concomitant]
     Indication: GASTROOESOPHAGEAL REFLUX DISEASE
     Route: 048
     Dates: start: 2009
  9. DYAZIDE [Concomitant]
     Indication: HYPERTENSION
     Dosage: DOSE: 37.5MG/25MG
     Route: 048
     Dates: start: 2007
  10. ADVAIR DISKUS [Concomitant]
     Indication: ASTHMA
     Dosage: DOSE:1, 250-50 MCG/DOSE
     Route: 055
     Dates: start: 2000
  11. FLONASE [Concomitant]
     Indication: HYPERSENSITIVITY
     Route: 055
     Dates: start: 2000
  12. FLEXERIL [Concomitant]
     Indication: MUSCLE SPASMS
     Dosage: 10 MG. 1 TABLET EVERY 8 HOURS
     Route: 048
  13. XANAX [Concomitant]
     Indication: ABDOMINAL PAIN
     Dosage: 0.25 MG
     Route: 048
  14. XANAX [Concomitant]
     Indication: ABDOMINAL PAIN
     Route: 048
     Dates: start: 20111005
  15. PROAIR HFA [Concomitant]
     Dosage: 90 MCG, 2 PUFFS AS INSTRUCTED EVERY 6 HOURS. AS NECESSARY
     Route: 055
  16. PERCOCET [Concomitant]
     Indication: PAIN
     Dosage: 5-325 MG. 1-2 TABS EVERY 6 HOURS AS NEEDED.
     Route: 048
  17. TRIAMTERENE-HYDROCHLOROTHIAZIDE [Concomitant]
     Dosage: 37.5-25 MG DAILY
     Route: 048

REACTIONS (3)
  - Lymphoma [Fatal]
  - Urinary tract infection [Recovered/Resolved]
  - Splenomegaly [Not Recovered/Not Resolved]
